FAERS Safety Report 15459778 (Version 1)
Quarter: 2018Q4

REPORT INFORMATION
  Report Type: Spontaneous
  Country: US (occurrence: US)
  Receive Date: 20181001
  Receipt Date: 20181001
  Transmission Date: 20190204
  Serious: Yes (Death)
  Sender: FDA-Public Use
  Company Number: None

PATIENT
  Age: 48 Year
  Sex: Female

DRUGS (1)
  1. OSELTAMIVIR [Suspect]
     Active Substance: OSELTAMIVIR

REACTIONS (7)
  - Seizure [None]
  - Respiratory arrest [None]
  - Anxiety [None]
  - Streptococcal bacteraemia [None]
  - Cardiac arrest [None]
  - Sepsis [None]
  - Cerebral disorder [None]

NARRATIVE: CASE EVENT DATE: 20180101
